FAERS Safety Report 5789470-4 (Version None)
Quarter: 2008Q2

REPORT INFORMATION
  Report Type: 
  Country: None (occurrence: None)
  Receive Date: 20080623
  Receipt Date: 20080612
  Transmission Date: 20081010
  Serious: Yes (Hospitalization)
  Sender: FDA-Public Use
  Company Number: 6043605

PATIENT
  Age: 16 Year
  Sex: Male

DRUGS (5)
  1. CARDENSIEL 10 MG(10 MG, TABLET) (BISOPROLOL FUMARATE) [Suspect]
     Indication: CARDIAC FAILURE
     Route: 048
     Dates: start: 20061018
  2. RAMIPRIL [Suspect]
     Indication: HYPERTENSION
     Route: 048
     Dates: start: 20061018
  3. LASIX [Suspect]
     Indication: OEDEMA
     Route: 048
     Dates: start: 20061018
  4. ALDACTONE [Suspect]
     Indication: HYPERTENSION
     Route: 048
     Dates: start: 20061018
  5. PREVISCAN (FLUINDIONE) [Suspect]
     Indication: DRUG USE FOR UNKNOWN INDICATION
     Route: 048
     Dates: start: 20061018

REACTIONS (2)
  - DEHYDRATION [None]
  - PANCREATITIS ACUTE [None]
